FAERS Safety Report 7794216-4 (Version None)
Quarter: 2011Q4

REPORT INFORMATION
  Report Type: 
  Country: None (occurrence: None)
  Receive Date: 20111004
  Receipt Date: 20110331
  Transmission Date: 20120403
  Serious: No
  Sender: FDA-Public Use
  Company Number: US-VIIV HEALTHCARE LIMITED-A0921851A

PATIENT
  Age: 47 Year
  Sex: Female

DRUGS (2)
  1. SELZENTRY [Suspect]
     Indication: HIV INFECTION
     Dosage: 300MG TWICE PER DAY
     Route: 048
     Dates: start: 20110128
  2. TRUVADA [Suspect]
     Indication: HIV INFECTION
     Dates: start: 20110128

REACTIONS (1)
  - CD4 LYMPHOCYTES DECREASED [None]
